FAERS Safety Report 17884829 (Version 1)
Quarter: 2020Q2

REPORT INFORMATION
  Report Type: Spontaneous
  Country: US (occurrence: US)
  Receive Date: 20200611
  Receipt Date: 20200611
  Transmission Date: 20200714
  Serious: Yes (Death)
  Sender: FDA-Public Use
  Company Number: None

PATIENT
  Age: 77 Year
  Sex: Female
  Weight: 77.85 kg

DRUGS (22)
  1. APIXABAN [Concomitant]
     Active Substance: APIXABAN
     Dates: start: 20200520, end: 20200529
  2. METHYLPREDNISOLONE. [Concomitant]
     Active Substance: METHYLPREDNISOLONE
     Dates: start: 20200520, end: 20200608
  3. ALLOPURINOL. [Concomitant]
     Active Substance: ALLOPURINOL
     Dates: start: 20200520, end: 20200608
  4. FENTANYL. [Concomitant]
     Active Substance: FENTANYL
     Dates: start: 20200528, end: 20200608
  5. REMDESIVIR. [Suspect]
     Active Substance: REMDESIVIR
     Indication: COVID-19 PNEUMONIA
     Dosage: ?          OTHER FREQUENCY:1100 MG TOTAL;?
     Route: 042
     Dates: start: 20200527, end: 20200605
  6. ATORVASTATIN [Concomitant]
     Active Substance: ATORVASTATIN
     Dates: start: 20200520, end: 20200608
  7. DULOXETINE. [Concomitant]
     Active Substance: DULOXETINE
     Dates: start: 20200520, end: 20200531
  8. FUROSEMIDE. [Concomitant]
     Active Substance: FUROSEMIDE
     Dates: start: 20200522, end: 20200606
  9. ENOXAPARIN [Concomitant]
     Active Substance: ENOXAPARIN
     Dates: start: 20200529, end: 20200608
  10. HYDROXYCHLOROQUINE [Concomitant]
     Active Substance: HYDROXYCHLOROQUINE
     Dates: start: 20200520, end: 20200608
  11. VITAMIN D [Concomitant]
     Active Substance: VITAMIN D NOS
     Dates: start: 20200529, end: 20200608
  12. ALBUMIN HUMAN 5% [Concomitant]
     Dates: start: 20200531, end: 20200607
  13. COREG [Concomitant]
     Active Substance: CARVEDILOL
     Dates: start: 20200520, end: 20200608
  14. ERTAPENEM. [Concomitant]
     Active Substance: ERTAPENEM SODIUM
     Dates: start: 20200521, end: 20200531
  15. PANTOPRAZOLE [Concomitant]
     Active Substance: PANTOPRAZOLE
     Dates: start: 20200521, end: 20200527
  16. ZINC SULFATE. [Concomitant]
     Active Substance: ZINC SULFATE
     Dates: start: 20200520, end: 20200525
  17. INSULIN [Concomitant]
     Active Substance: INSULIN NOS
     Dates: start: 20200523, end: 20200608
  18. PROPOFOL. [Concomitant]
     Active Substance: PROPOFOL
     Dates: start: 20200528, end: 20200608
  19. SULFASALAZINE. [Concomitant]
     Active Substance: SULFASALAZINE
     Dates: start: 20200520, end: 20200608
  20. FOLIC ACID. [Concomitant]
     Active Substance: FOLIC ACID
     Dates: start: 20200520, end: 20200608
  21. PHENYLEPHRINE [Concomitant]
     Active Substance: PHENYLEPHRINE HYDROCHLORIDE
     Dates: start: 20200605, end: 20200608
  22. PREGABALIN. [Concomitant]
     Active Substance: PREGABALIN
     Dates: start: 20200520, end: 20200608

REACTIONS (1)
  - Death [None]

NARRATIVE: CASE EVENT DATE: 20200608
